FAERS Safety Report 9591782 (Version 2)
Quarter: 2013Q4

REPORT INFORMATION
  Report Type: Spontaneous
  Country: US (occurrence: US)
  Receive Date: 20131004
  Receipt Date: 20131004
  Transmission Date: 20140711
  Serious: No
  Sender: FDA-Public Use
  Company Number: US-AMGEN-USASP2012081827

PATIENT
  Age: 59 Year
  Sex: Male
  Weight: 136.5 kg

DRUGS (4)
  1. ENBREL [Suspect]
     Indication: PSORIATIC ARTHROPATHY
     Dosage: 25 MG, TWICE WEEKLY
     Route: 058
     Dates: start: 19990301, end: 201210
  2. HUMIRA [Concomitant]
     Dosage: UNK
  3. MOTRIN [Concomitant]
     Dosage: 400 MG, UNK
  4. DIAZEPAM [Concomitant]
     Dosage: 10 MG, UNK

REACTIONS (4)
  - Therapeutic response decreased [Unknown]
  - Musculoskeletal stiffness [Recovered/Resolved]
  - Swelling [Recovered/Resolved]
  - Arthralgia [Recovered/Resolved]
